FAERS Safety Report 7113865-X (Version None)
Quarter: 2010Q4

REPORT INFORMATION
  Report Type: 
  Country: None (occurrence: None)
  Receive Date: 20101119
  Receipt Date: 20101108
  Transmission Date: 20110411
  Serious: Yes (Life-Threatening, Hospitalization)
  Sender: FDA-Public Use
  Company Number: GXKR2010NL09923

PATIENT
  Age: 84 Year
  Sex: Female

DRUGS (2)
  1. PARACETAMOL (NGX) [Suspect]
     Indication: PAIN
     Dosage: 1000 MG, TID (PRN)
     Route: 065
  2. TRAMADOL HCL [Concomitant]
     Dosage: 3 DF, QD (IF NECESSARY)
     Route: 065

REACTIONS (2)
  - ANION GAP INCREASED [None]
  - METABOLIC ACIDOSIS [None]
